FAERS Safety Report 4801402-1 (Version None)
Quarter: 2005Q4

REPORT INFORMATION
  Report Type: 
  Country: None (occurrence: None)
  Receive Date: 20051011
  Receipt Date: 20050927
  Transmission Date: 20060501
  Serious: Yes (Hospitalization)
  Sender: FDA-Public Use
  Company Number: HQWYE701528SEP05

PATIENT
  Age: 66 Year
  Sex: Female
  Weight: 104.42 kg

DRUGS (9)
  1. PREMARIN [Suspect]
     Dosage: 0.625 MG DAILY, ORAL
     Route: 048
     Dates: start: 20020101, end: 20050701
  2. PREMARIN [Suspect]
     Indication: VAGINAL BURNING SENSATION
     Dosage: UNSPECIFIED DOSAGE, BUT TWICE WEEKLY, VAGINAL
     Route: 067
     Dates: start: 20050906
  3. ECOTRIN (ACETYLSALICYLIC ACID) [Concomitant]
  4. NORVASC [Concomitant]
  5. METOPROLOL TARTRATE [Concomitant]
  6. PROTONIX [Concomitant]
  7. ALTACE [Concomitant]
  8. ZETIA [Concomitant]
  9. DIAZEPAM [Concomitant]

REACTIONS (7)
  - DRUG WITHDRAWAL SYNDROME [None]
  - DYSURIA [None]
  - EMBOLISM [None]
  - HUNGER [None]
  - MYOCARDIAL INFARCTION [None]
  - NERVOUSNESS [None]
  - WEIGHT INCREASED [None]
